FAERS Safety Report 23259934 (Version 1)
Quarter: 2023Q4

REPORT INFORMATION
  Report Type: Spontaneous
  Country: US (occurrence: US)
  Receive Date: 20231204
  Receipt Date: 20231204
  Transmission Date: 20240110
  Serious: No
  Sender: FDA-Public Use
  Company Number: US-Calliditas-2023CAL01536

PATIENT
  Age: 55 Year
  Sex: Female
  Weight: 70.45 kg

DRUGS (1)
  1. TARPEYO [Suspect]
     Active Substance: BUDESONIDE
     Indication: IgA nephropathy
     Dosage: 16 MG (4 MG CAPSULES) ONCE DAILY
     Route: 048
     Dates: start: 20230726

REACTIONS (7)
  - Weight increased [Unknown]
  - Abdominal distension [Unknown]
  - Swelling face [Unknown]
  - Dry mouth [Unknown]
  - Irritability [Unknown]
  - Hypertension [Unknown]
  - Muscle spasms [Unknown]
